FAERS Safety Report 9308824 (Version 2)
Quarter: 2013Q2

REPORT INFORMATION
  Report Type: Report from Study
  Country: US (occurrence: US)
  Receive Date: 20130524
  Receipt Date: 20130607
  Transmission Date: 20140414
  Serious: Yes (Hospitalization, Other)
  Sender: FDA-Public Use
  Company Number: US-ROCHE-1228529

PATIENT
  Age: 63 Year
  Sex: Male
  Weight: 88.9 kg

DRUGS (11)
  1. PEG-INTERFERON ALFA 2A [Suspect]
     Indication: HEPATITIS C
     Route: 058
     Dates: start: 20130221
  2. RIBAVIRIN [Suspect]
     Indication: HEPATITIS C
     Route: 048
     Dates: start: 20130221, end: 201305
  3. RIBAVIRIN [Suspect]
     Dosage: 600 MG
     Route: 048
     Dates: start: 201305
  4. TELAPREVIR [Suspect]
     Indication: HEPATITIS C
     Route: 048
     Dates: start: 20130221, end: 20130516
  5. BUPROPION [Concomitant]
     Route: 065
     Dates: start: 20121024
  6. ALBUTEROL [Concomitant]
     Route: 065
     Dates: start: 20121202
  7. ALBUTEROL/IPRATROPIUM [Concomitant]
  8. OMEPRAZOLE [Concomitant]
     Route: 065
     Dates: start: 20130226
  9. HYDROCHLOROTHIAZIDE [Concomitant]
     Route: 065
     Dates: start: 20130226
  10. LABETALOL [Concomitant]
     Route: 065
     Dates: start: 20130305
  11. POTASSIUM CHLORIDE [Concomitant]
     Route: 065
     Dates: start: 20130312

REACTIONS (3)
  - Dehydration [Recovered/Resolved]
  - Hypotension [Recovered/Resolved]
  - Anaemia [Recovering/Resolving]
